FAERS Safety Report 5132403-4 (Version None)
Quarter: 2006Q4

REPORT INFORMATION
  Report Type: 
  Country: None (occurrence: None)
  Receive Date: 20061017
  Receipt Date: 20060131
  Transmission Date: 20070319
  Serious: Yes (Other)
  Sender: FDA-Public Use
  Company Number: 2006BH011400

PATIENT
  Sex: Female

DRUGS (1)
  1. DIANEAL [Suspect]
     Indication: PERITONEAL DIALYSIS
     Dosage: IP
     Route: 033

REACTIONS (4)
  - PERITONITIS BACTERIAL [None]
  - STAPHYLOCOCCAL INFECTION [None]
  - THERMAL BURN [None]
  - WRONG TECHNIQUE IN DRUG USAGE PROCESS [None]
